FAERS Safety Report 24777053 (Version 2)
Quarter: 2025Q2

REPORT INFORMATION
  Report Type: Spontaneous
  Country: GB (occurrence: GB)
  Receive Date: 20241226
  Receipt Date: 20250630
  Transmission Date: 20250717
  Serious: Yes (Life-Threatening, Other)
  Sender: RANBAXY
  Company Number: GB-MHRA-TPP50952303C4288932YC1733936555678

PATIENT
  Age: 25 Year
  Sex: Male
  Weight: 96 kg

DRUGS (2)
  1. OLANZAPINE [Suspect]
     Active Substance: OLANZAPINE
     Indication: Product used for unknown indication
     Route: 065
  2. RIVAROXABAN [Concomitant]
     Active Substance: RIVAROXABAN
     Indication: Product used for unknown indication
     Dosage: TAKE ONE TABLET DAILY (CRCL SEPT 2024)
     Route: 065
     Dates: start: 20241015

REACTIONS (1)
  - Pulmonary embolism [Recovered/Resolved]
